FAERS Safety Report 9014201 (Version 2)
Quarter: 2013Q1

REPORT INFORMATION
  Report Type: Report from Study
  Country: US (occurrence: US)
  Receive Date: 20130115
  Receipt Date: 20130207
  Transmission Date: 20140127
  Serious: Yes (Other)
  Sender: FDA-Public Use
  Company Number: US-US-EMD SERONO, INC.-7186620

PATIENT
  Sex: Female
  Weight: 93 kg

DRUGS (8)
  1. REBIF [Suspect]
     Indication: MULTIPLE SCLEROSIS
     Route: 058
     Dates: start: 20120801
  2. LYRICA [Concomitant]
     Indication: PAIN
  3. SAVELLA [Concomitant]
     Indication: PAIN
  4. AMANTADINE [Concomitant]
     Indication: FATIGUE
  5. TRIAM/HCTZ [Concomitant]
     Indication: HYPERTENSION
  6. BYSTOLIC [Concomitant]
     Indication: HYPERTENSION
  7. AMLODIPINE [Concomitant]
     Indication: HYPERTENSION
  8. METFORMIN [Concomitant]
     Indication: DIABETES MELLITUS

REACTIONS (4)
  - Renal failure [Recovered/Resolved]
  - Diabetes mellitus inadequate control [Recovered/Resolved]
  - Upper respiratory tract infection [Not Recovered/Not Resolved]
  - Dyspnoea [Unknown]
